FAERS Safety Report 14353023 (Version 2)
Quarter: 2018Q1

REPORT INFORMATION
  Report Type: Report from Study
  Country: US (occurrence: US)
  Receive Date: 20180104
  Receipt Date: 20180131
  Transmission Date: 20180509
  Serious: Yes (Death, Hospitalization)
  Sender: FDA-Public Use
  Company Number: US-EXELIXIS-CABO-17011870

PATIENT
  Age: 40 Year
  Sex: Male

DRUGS (2)
  1. TORISEL [Concomitant]
     Active Substance: TEMSIROLIMUS
  2. CABOMETYX [Suspect]
     Active Substance: CABOZANTINIB S-MALATE
     Indication: RENAL CANCER
     Dosage: 60 MG, QD
     Route: 048
     Dates: start: 20170830, end: 20171026

REACTIONS (4)
  - Vomiting [Unknown]
  - Malignant neoplasm progression [Fatal]
  - Nausea [Unknown]
  - Diarrhoea [Unknown]

NARRATIVE: CASE EVENT DATE: 20171026
